FAERS Safety Report 23267388 (Version 1)
Quarter: 2023Q4

REPORT INFORMATION
  Report Type: Report from Study
  Country: CA (occurrence: CA)
  Receive Date: 20231206
  Receipt Date: 20231206
  Transmission Date: 20240109
  Serious: Yes (Other)
  Sender: FDA-Public Use
  Company Number: CA-002147023-NVSC2023CA076846

PATIENT
  Sex: Female

DRUGS (1)
  1. HYRIMOZ [Suspect]
     Active Substance: ADALIMUMAB-ADAZ
     Indication: Crohn^s disease
     Dosage: 40 MG, QW (FORMULATION: PRE-FILLED PEN)
     Route: 058
     Dates: start: 20220520

REACTIONS (4)
  - Uveitis [Unknown]
  - Influenza [Unknown]
  - Ear pain [Unknown]
  - Off label use [Unknown]
